FAERS Safety Report 15148046 (Version 5)
Quarter: 2019Q1

REPORT INFORMATION
  Report Type: Report from Study
  Country: US (occurrence: US)
  Receive Date: 20180716
  Receipt Date: 20190315
  Transmission Date: 20190417
  Serious: Yes (Death, Hospitalization)
  Sender: FDA-Public Use
  Company Number: US-B.I. PHARMACEUTICALS,INC./RIDGEFIELD-2017-BI-005907

PATIENT
  Age: 73 Year
  Sex: Male

DRUGS (2)
  1. OFEV [Suspect]
     Active Substance: NINTEDANIB
     Route: 048
     Dates: start: 20180409
  2. OFEV [Suspect]
     Active Substance: NINTEDANIB
     Indication: IDIOPATHIC PULMONARY FIBROSIS
     Route: 048
     Dates: start: 20170127, end: 20170414

REACTIONS (20)
  - Hepatic enzyme increased [Unknown]
  - Pneumonia [Fatal]
  - Idiopathic pulmonary fibrosis [Fatal]
  - Thrombosis [Unknown]
  - Dizziness [Unknown]
  - Nausea [Unknown]
  - Rhinorrhoea [Unknown]
  - Productive cough [Unknown]
  - Weight decreased [Unknown]
  - Diarrhoea [Unknown]
  - Liver function test increased [Not Recovered/Not Resolved]
  - Decreased appetite [Unknown]
  - Oxygen saturation abnormal [Unknown]
  - Pulmonary congestion [Unknown]
  - Infection [Unknown]
  - Nasopharyngitis [Not Recovered/Not Resolved]
  - Cough [Unknown]
  - Nasopharyngitis [Unknown]
  - Depression [Unknown]
  - Dyspnoea [Unknown]

NARRATIVE: CASE EVENT DATE: 20170130
